FAERS Safety Report 5219589-8 (Version None)
Quarter: 2007Q1

REPORT INFORMATION
  Report Type: 
  Country: None (occurrence: None)
  Receive Date: 20070125
  Receipt Date: 20070110
  Transmission Date: 20070707
  Serious: Yes (Hospitalization)
  Sender: FDA-Public Use
  Company Number: US-SHR-US-2007-000899

PATIENT
  Age: 58 Year
  Sex: Female

DRUGS (1)
  1. BETASERON [Suspect]
     Indication: MULTIPLE SCLEROSIS
     Dosage: 8 MIU, EVERY 2D
     Route: 058
     Dates: start: 20050330

REACTIONS (5)
  - ANKLE FRACTURE [None]
  - CHEST DISCOMFORT [None]
  - HEPATIC ENZYME ABNORMAL [None]
  - NAUSEA [None]
  - VOMITING [None]
